FAERS Safety Report 10010137 (Version 2)
Quarter: 2014Q1

REPORT INFORMATION
  Report Type: Spontaneous
  Country: US (occurrence: US)
  Receive Date: 20140312
  Receipt Date: 20140312
  Transmission Date: 20141002
  Serious: No
  Sender: FDA-Public Use
  Company Number: US-INCYTE CORPORATION-2013IN001316

PATIENT
  Age: 86 Year
  Sex: Female
  Weight: 49.43 kg

DRUGS (2)
  1. JAKAFI [Suspect]
     Indication: MYELOFIBROSIS
     Dosage: 5 MG, BID
     Route: 048
     Dates: start: 20130401, end: 20130605
  2. DIURETICS [Suspect]
     Dosage: NOT SPECIFIED

REACTIONS (3)
  - Dehydration [Unknown]
  - General physical health deterioration [Unknown]
  - Haemoglobin decreased [Not Recovered/Not Resolved]
